FAERS Safety Report 10788876 (Version 1)
Quarter: 2015Q1

REPORT INFORMATION
  Report Type: Spontaneous
  Country: US (occurrence: US)
  Receive Date: 20150212
  Receipt Date: 20150212
  Transmission Date: 20150721
  Serious: No
  Sender: FDA-Public Use
  Company Number: US-GLAXOSMITHKLINE-A1067781A

PATIENT

DRUGS (6)
  1. NICORETTE [Suspect]
     Active Substance: NICOTINE
     Indication: SMOKING CESSATION THERAPY
     Route: 002
  2. RISPERDAL [Concomitant]
     Active Substance: RISPERIDONE
  3. SYNTHROID [Concomitant]
     Active Substance: LEVOTHYROXINE SODIUM
  4. LITHIUM [Concomitant]
     Active Substance: LITHIUM CARBONATE
  5. NICORETTE [Suspect]
     Active Substance: NICOTINE
     Indication: SMOKING CESSATION THERAPY
     Route: 002
  6. OSTEOPOROSIS MEDICATION [Concomitant]

REACTIONS (9)
  - Fear [Recovered/Resolved]
  - Nicotine dependence [Not Recovered/Not Resolved]
  - Muscle tightness [Recovered/Resolved]
  - Paranoia [Recovered/Resolved]
  - Pain [Recovered/Resolved]
  - Myalgia [Recovered/Resolved]
  - Drug administration error [Not Recovered/Not Resolved]
  - Mental disorder [Recovered/Resolved]
  - Asthenia [Recovered/Resolved]

NARRATIVE: CASE EVENT DATE: 201401
